FAERS Safety Report 15459811 (Version 1)
Quarter: 2018Q4

REPORT INFORMATION
  Report Type: Spontaneous
  Country: US (occurrence: US)
  Receive Date: 20181002
  Receipt Date: 20181002
  Transmission Date: 20190204
  Serious: No
  Sender: FDA-Public Use
  Company Number: None

PATIENT
  Age: 29 Year
  Sex: Male
  Weight: 67.5 kg

DRUGS (2)
  1. INSULIN PUMP WITH HUMALOG [Concomitant]
  2. FINASTERIDE. [Suspect]
     Active Substance: FINASTERIDE
     Indication: ALOPECIA
     Dosage: ?          QUANTITY:1 TABLET(S);?
     Route: 048
     Dates: start: 20180701, end: 20180923

REACTIONS (3)
  - Erectile dysfunction [None]
  - Ejaculation disorder [None]
  - Loss of libido [None]

NARRATIVE: CASE EVENT DATE: 20180915
